FAERS Safety Report 5027256-9 (Version None)
Quarter: 2006Q2

REPORT INFORMATION
  Report Type: 
  Country: None (occurrence: None)
  Receive Date: 20060609
  Receipt Date: 20060522
  Transmission Date: 20061013
  Serious: Yes (Hospitalization)
  Sender: FDA-Public Use
  Company Number: 225924

PATIENT
  Age: 72 Year
  Sex: Female

DRUGS (15)
  1. AVASTIN [Suspect]
     Indication: PANCREATIC CARCINOMA
     Dosage: 5 MG/KG, Q2W, INTRAVENOUS
     Route: 042
     Dates: start: 20060111
  2. ERLOTINIB                  (ERLOTINIB) [Suspect]
     Indication: PANCREATIC CARCINOMA
     Dosage: 100 MG, QD,
     Dates: start: 20060111
  3. CAPECITABINE                         (CAPECITABINE) [Suspect]
     Indication: PANCREATIC CARCINOMA
     Dosage: 910 MG/M2, QD, ORAL
     Route: 048
     Dates: start: 20060111
  4. GEMCITABINE [Suspect]
     Indication: PANCREATIC CARCINOMA
     Dosage: 1000 MG/M2, INTRAVENOUS
     Route: 042
     Dates: start: 20060111
  5. GAVISCON                     (GASTROINTESTINAL DRUG NOS) [Concomitant]
  6. DIAZEPAM [Concomitant]
  7. AMITRIPTYLINE HCL [Concomitant]
  8. METOCLOPRAMIDE (METOCLOPRAMIDE HYDROCHLORIDE) [Concomitant]
  9. LANSOPRAZOLE [Concomitant]
  10. SCHERIPROCT OINTMENT (DIBUCAINE HYDROCHLORIDE, PREDNISOLONE HEXANOATE) [Concomitant]
  11. CHLORHEXIDINE (CHLORHEXIDINE GLUCONATE) [Concomitant]
  12. CONCOMITANT DRUGS [Concomitant]
  13. SENNOSIDES (SENNOSIDES) [Concomitant]
  14. SUCRALFATE [Concomitant]
  15. NYSTATIN [Concomitant]

REACTIONS (2)
  - FOREIGN BODY TRAUMA [None]
  - INFECTION [None]
